FAERS Safety Report 4781050-2 (Version None)
Quarter: 2005Q3

REPORT INFORMATION
  Report Type: 
  Country: None (occurrence: None)
  Receive Date: 20050926
  Receipt Date: 20050916
  Transmission Date: 20060218
  Serious: Yes (Death, Life-Threatening, Other)
  Sender: FDA-Public Use
  Company Number: 2005-09-0951

PATIENT
  Age: 22 Year
  Sex: Male

DRUGS (3)
  1. PEG-INTERFERON INJECTABLE [Suspect]
     Indication: HEPATITIS C
     Dosage: 180 MCG SUBCUTANEOUS
     Route: 058
     Dates: start: 20050311, end: 20050807
  2. ALCOHOL [Suspect]
     Dosage: ORAL
     Route: 048
     Dates: start: 20050807, end: 20050807
  3. ANTIDEPRESSANTS (NOS) [Suspect]
     Dosage: ORAL
     Route: 048

REACTIONS (4)
  - ALCOHOL POISONING [None]
  - DEPRESSION [None]
  - DRUG TOXICITY [None]
  - DYSPNOEA [None]
